FAERS Safety Report 5745943-1 (Version None)
Quarter: 2008Q2

REPORT INFORMATION
  Report Type: 
  Country: None (occurrence: None)
  Receive Date: 20080520
  Receipt Date: 20080502
  Transmission Date: 20081010
  Serious: Yes (Other)
  Sender: FDA-Public Use
  Company Number: PERC20080045

PATIENT
  Age: 42 Year
  Sex: Female

DRUGS (16)
  1. PERCOCET [Suspect]
     Indication: DRUG USE FOR UNKNOWN INDICATION
     Route: 002
     Dates: start: 20050901, end: 20070615
  2. PERCOCET [Suspect]
     Indication: DRUG USE FOR UNKNOWN INDICATION
     Route: 002
     Dates: start: 20031002
  3. ACTIQ [Suspect]
     Indication: PAIN IN EXTREMITY
     Dosage: 400 MCG, PRN, BU
     Route: 002
     Dates: start: 20020808, end: 20021001
  4. ACTIQ [Suspect]
     Indication: PAIN IN EXTREMITY
     Dosage: 400 MCG, PRN, BU
     Route: 002
     Dates: start: 20021001, end: 20030201
  5. ACTIQ [Suspect]
     Indication: PAIN IN EXTREMITY
     Dosage: 400 MCG, PRN, BU
     Route: 002
     Dates: start: 20050901, end: 20070615
  6. DILAUDID [Suspect]
     Dosage: 4 MG, INTERMITTANTLY UTILIZED OVER 4 YEARS PRN, ORAL
     Route: 048
     Dates: start: 20010425, end: 20060118
  7. KADIAN [Suspect]
     Dosage: 60 MG, BID
     Dates: start: 20030601, end: 20060823
  8. LORTAB [Suspect]
     Dates: start: 20010405, end: 20050101
  9. OXYCODONE HCL [Suspect]
     Dosage: 15 MG, TID, PER ORAL
     Route: 048
     Dates: start: 20030507
  10. OXYCONTIN [Suspect]
     Dosage: 40 MG, BID, PER ORAL
     Route: 048
     Dates: start: 20010405, end: 20060712
  11. DURAGESIC-100 [Suspect]
     Dosage: 50 MG, Q1H,
  12. XANAX [Concomitant]
  13. EFFEXOR [Concomitant]
  14. LYRICA [Concomitant]
  15. TRAZODONE HCL [Concomitant]
  16. ZONEGRAN [Concomitant]

REACTIONS (6)
  - ABSCESS ORAL [None]
  - DENTAL CARIES [None]
  - DRUG DEPENDENCE [None]
  - DRUG TOLERANCE [None]
  - PERSONALITY CHANGE [None]
  - TOOTH LOSS [None]
